FAERS Safety Report 15587463 (Version 1)
Quarter: 2018Q4

REPORT INFORMATION
  Report Type: Spontaneous
  Country: US (occurrence: US)
  Receive Date: 20181105
  Receipt Date: 20181105
  Transmission Date: 20190205
  Serious: No
  Sender: FDA-Public Use
  Company Number: US-MIST-TIR-2018-0537

PATIENT
  Sex: Female
  Weight: 65.38 kg

DRUGS (11)
  1. SINGULAIR [Concomitant]
     Active Substance: MONTELUKAST SODIUM
     Indication: PRODUCT USED FOR UNKNOWN INDICATION
     Dosage: 10MG EVERY EVENING
  2. TIROSINT [Suspect]
     Active Substance: LEVOTHYROXINE SODIUM
     Dosage: ALTERNATING 112MCG ONE DAY AND 125MCG THE NEXT DAY
     Route: 048
     Dates: end: 201801
  3. TIROSINT [Suspect]
     Active Substance: LEVOTHYROXINE SODIUM
     Indication: HYPOTHYROIDISM
     Dosage: 125MCG DAILY
     Route: 048
     Dates: start: 2017
  4. ALLEGRA [Concomitant]
     Active Substance: FEXOFENADINE HYDROCHLORIDE
     Indication: PRODUCT USED FOR UNKNOWN INDICATION
     Dosage: ONE HALF (1/2) OF A 180MG TABLET EVERY EVENING
     Route: 048
  5. MULTIVITAMIN WITH IRON [Concomitant]
     Active Substance: IRON\VITAMINS
     Indication: PRODUCT USED FOR UNKNOWN INDICATION
     Dosage: DAILY
  6. TIROSINT [Suspect]
     Active Substance: LEVOTHYROXINE SODIUM
     Dosage: 125MCG DAILY
     Route: 048
     Dates: start: 201801
  7. LANTUS [Concomitant]
     Active Substance: INSULIN GLARGINE
     Indication: PRODUCT USED FOR UNKNOWN INDICATION
     Dosage: 80 UNITS EVERY EVENING
     Route: 058
  8. NOVOLOG [Concomitant]
     Active Substance: INSULIN ASPART
     Indication: PRODUCT USED FOR UNKNOWN INDICATION
     Dosage: 30 UNITS EVERY MORNING
     Route: 058
  9. TIROSINT [Suspect]
     Active Substance: LEVOTHYROXINE SODIUM
     Dosage: ALTERNATING 112MCG ONE DAY AND 125MCG THE NEXT DAY
     Route: 048
     Dates: end: 2017
  10. ADVAIR DISKUS [Concomitant]
     Active Substance: FLUTICASONE PROPIONATE\SALMETEROL XINAFOATE
     Indication: PRODUCT USED FOR UNKNOWN INDICATION
     Dosage: ONE PUFF EVERY EVENING
  11. TIROSINT [Suspect]
     Active Substance: LEVOTHYROXINE SODIUM
     Indication: HYPOTHYROIDISM
     Route: 048
     Dates: end: 2017

REACTIONS (7)
  - Inappropriate schedule of product administration [Unknown]
  - Somnolence [Recovered/Resolved]
  - Thyroid function test abnormal [Unknown]
  - Sluggishness [Recovered/Resolved]
  - Palpitations [Recovered/Resolved]
  - Drug level below therapeutic [Unknown]
  - Anxiety [Recovered/Resolved]

NARRATIVE: CASE EVENT DATE: 2017
